FAERS Safety Report 13125867 (Version 1)
Quarter: 2017Q1

REPORT INFORMATION
  Report Type: Spontaneous
  Country: US (occurrence: US)
  Receive Date: 20170117
  Receipt Date: 20170117
  Transmission Date: 20170428
  Serious: Yes (Other)
  Sender: FDA-Public Use
  Company Number: None

PATIENT
  Age: 52 Year
  Sex: Female
  Weight: 83.25 kg

DRUGS (13)
  1. TUEJEO [Concomitant]
  2. TOPAMAX [Concomitant]
     Active Substance: TOPIRAMATE
  3. ZYRTEC [Concomitant]
     Active Substance: CETIRIZINE HYDROCHLORIDE
  4. ACTOS [Concomitant]
     Active Substance: PIOGLITAZONE HYDROCHLORIDE
  5. ADVAIR HFA [Concomitant]
     Active Substance: FLUTICASONE PROPIONATE\SALMETEROL XINAFOATE
  6. NEBULIZER [Concomitant]
     Active Substance: DEVICE
  7. VICTOZA [Suspect]
     Active Substance: LIRAGLUTIDE
     Indication: TYPE 2 DIABETES MELLITUS
     Dosage: ?          QUANTITY:1 INJECTION(S);?
     Route: 058
  8. ZOLOFT [Concomitant]
     Active Substance: SERTRALINE HYDROCHLORIDE
  9. JANUMET [Concomitant]
     Active Substance: METFORMIN HYDROCHLORIDE\SITAGLIPTIN PHOSPHATE
  10. KRESTOR [Concomitant]
  11. PROAIR INHALER [Concomitant]
  12. SINGULAIR [Concomitant]
     Active Substance: MONTELUKAST SODIUM
  13. ALBUTERAL [Concomitant]
     Active Substance: ALBUTEROL

REACTIONS (10)
  - Pyrexia [None]
  - Injection site pruritus [None]
  - Fatigue [None]
  - Injection site reaction [None]
  - Influenza like illness [None]
  - Injection site erythema [None]
  - Decreased activity [None]
  - Injection site bruising [None]
  - Lethargy [None]
  - Rash [None]
